FAERS Safety Report 4337671-4 (Version None)
Quarter: 2004Q2

REPORT INFORMATION
  Report Type: 
  Country: None (occurrence: None)
  Receive Date: 20040407
  Receipt Date: 20040325
  Transmission Date: 20050107
  Serious: Yes (Hospitalization)
  Sender: FDA-Public Use
  Company Number: BE-JNJFOC-20040305468

PATIENT
  Age: 58 Year
  Sex: Female
  Weight: 61.6 kg

DRUGS (3)
  1. REMICADE [Suspect]
     Indication: CROHN'S DISEASE
     Dosage: INTRAVENOUS
     Route: 042
  2. BUDESONIDE (BUDESONIDE) [Concomitant]
  3. BISOPROLOL FUMARATE [Concomitant]

REACTIONS (5)
  - ABDOMINAL PAIN [None]
  - COLITIS ULCERATIVE [None]
  - COUGH [None]
  - INTESTINAL STOMA COMPLICATION [None]
  - NAUSEA [None]
